FAERS Safety Report 5127606-9 (Version None)
Quarter: 2006Q4

REPORT INFORMATION
  Report Type: 
  Country: None (occurrence: None)
  Receive Date: 20061016
  Receipt Date: 20061009
  Transmission Date: 20070319
  Serious: Yes (Congenital Anomaly, Other)
  Sender: FDA-Public Use
  Company Number: GB-BRISTOL-MYERS SQUIBB COMPANY-13536719

PATIENT
  Sex: Female

DRUGS (4)
  1. ATAZANAVIR [Suspect]
     Indication: HIV TEST POSITIVE
     Route: 048
     Dates: start: 20010101
  2. DAPSONE [Suspect]
     Indication: HIV TEST POSITIVE
     Route: 048
     Dates: start: 20010101
  3. COMBIVIR [Concomitant]
     Route: 048
  4. ASASANTIN RETARD [Concomitant]
     Route: 048

REACTIONS (2)
  - HYDROCEPHALUS [None]
  - PREGNANCY [None]
